FAERS Safety Report 5115892-0 (Version None)
Quarter: 2006Q3

REPORT INFORMATION
  Report Type: 
  Country: None (occurrence: None)
  Receive Date: 20060927
  Receipt Date: 20060626
  Transmission Date: 20061208
  Serious: No
  Sender: FDA-Public Use
  Company Number: US-BRISTOL-MYERS SQUIBB COMPANY-13424106

PATIENT
  Age: 10 Year
  Sex: Female
  Weight: 63 kg

DRUGS (4)
  1. ABILIFY [Suspect]
     Indication: DISTURBANCE IN ATTENTION
     Route: 048
  2. ABILIFY [Suspect]
     Indication: SLEEP DISORDER
     Route: 048
  3. YASMIN [Concomitant]
     Indication: MENSTRUATION IRREGULAR
     Dates: start: 20060619
  4. MULTIVITAMIN [Concomitant]

REACTIONS (1)
  - INSOMNIA [None]
